FAERS Safety Report 5749095-3 (Version None)
Quarter: 2008Q2

REPORT INFORMATION
  Report Type: 
  Country: None (occurrence: None)
  Receive Date: 20080522
  Receipt Date: 20080414
  Transmission Date: 20081010
  Serious: Yes (Death)
  Sender: FDA-Public Use
  Company Number: 2008000853

PATIENT
  Age: 59 Year
  Sex: Male
  Weight: 73 kg

DRUGS (2)
  1. ERLOTINIB (ERLOTINIB HCL) (TABLET) (ERLOTINIB HCL) [Suspect]
     Indication: NON-SMALL CELL LUNG CANCER
     Dosage: (150 MG, QD), ORAL
     Route: 048
     Dates: start: 20080212
  2. SUNITINIB [Suspect]
     Dosage: (37.5 MG, QD), ORAL
     Route: 048
     Dates: start: 20080212

REACTIONS (5)
  - CARDIOVASCULAR INSUFFICIENCY [None]
  - DISEASE PROGRESSION [None]
  - HEPATIC FAILURE [None]
  - NON-SMALL CELL LUNG CANCER [None]
  - RESPIRATORY FAILURE [None]
